FAERS Safety Report 7124578-2 (Version None)
Quarter: 2010Q4

REPORT INFORMATION
  Report Type: 
  Country: None (occurrence: None)
  Receive Date: 20101123
  Receipt Date: 20101123
  Transmission Date: 20110411
  Serious: Yes (Other)
  Sender: FDA-Public Use
  Company Number: None

PATIENT
  Sex: Female
  Weight: 90.7194 kg

DRUGS (1)
  1. WELLBUTRIN XL [Suspect]
     Indication: MAJOR DEPRESSION
     Dosage: 450MG DAILY ORAL
     Route: 048
     Dates: start: 20080101

REACTIONS (2)
  - MAJOR DEPRESSION [None]
  - PRODUCT SUBSTITUTION ISSUE [None]
